FAERS Safety Report 10993803 (Version 1)
Quarter: 2015Q2

REPORT INFORMATION
  Report Type: Spontaneous
  Country: GB (occurrence: None)
  Receive Date: 20150403
  Receipt Date: 20150403
  Transmission Date: 20150821
  Serious: Yes (Hospitalization)
  Sender: FDA-Public Use
  Company Number: GB-H14001-15-00505

PATIENT
  Age: 34 Year
  Sex: Female

DRUGS (1)
  1. VANCOMYCIN (VANCOMYCIN) (UNKNOWN) (VANCOMYCIN) [Suspect]
     Active Substance: VANCOMYCIN
     Indication: PROPHYLAXIS
     Dosage: (NOT OTHERWISE SPECIFIED)
     Route: 042
     Dates: start: 20150311, end: 20150312

REACTIONS (9)
  - Paraesthesia [None]
  - Limb discomfort [None]
  - Muscle twitching [None]
  - Muscle rigidity [None]
  - Confusional state [None]
  - Agitation [None]
  - Fall [None]
  - Generalised tonic-clonic seizure [None]
  - Loss of consciousness [None]

NARRATIVE: CASE EVENT DATE: 20150311
